FAERS Safety Report 23059733 (Version 2)
Quarter: 2023Q4

REPORT INFORMATION
  Report Type: Report from Study
  Country: EG (occurrence: EG)
  Receive Date: 20231012
  Receipt Date: 20231024
  Transmission Date: 20240109
  Serious: Yes (Other)
  Sender: FDA-Public Use
  Company Number: EG-002147023-NVSC2023EG219074

PATIENT
  Age: 54 Year
  Sex: Male

DRUGS (8)
  1. ENTRESTO [Suspect]
     Active Substance: SACUBITRIL\VALSARTAN
     Indication: Cardiac failure
     Dosage: 50 MG, BID (MORE THAN 2 YEARS AGO, ENDED ON 1-6 MONTHS FROM START DATE)
     Route: 048
  2. ENTRESTO [Suspect]
     Active Substance: SACUBITRIL\VALSARTAN
     Dosage: 1 DOSAGE FORM QD, 100 MG (2-4 DAYS AGO)
     Route: 048
     Dates: start: 20231001
  3. METFORMIN HYDROCHLORIDE\VILDAGLIPTIN [Concomitant]
     Active Substance: METFORMIN HYDROCHLORIDE\VILDAGLIPTIN
     Indication: Diabetes mellitus
     Dosage: 1 DOSAGE FORM, BID
     Route: 048
  4. ASPIRIN [Concomitant]
     Active Substance: ASPIRIN
     Indication: Anticoagulant therapy
     Dosage: 1 DOSAGE FORM (AFTER LUNCH)
     Route: 065
  5. GLICLAZIDE [Concomitant]
     Active Substance: GLICLAZIDE
     Indication: Diabetes mellitus
     Dosage: 2 DOSAGE FORM, QD (-2 TABLETS IN MORNING ON EMPTY STOMACH)
     Route: 048
  6. BISOPROLOL FUMARATE [Concomitant]
     Active Substance: BISOPROLOL FUMARATE
     Indication: Hypertension
     Dosage: 1 DOSAGE FORM, QD, AFTER LUNCH (2.5 MG)
     Route: 065
     Dates: end: 20231001
  7. BISOPROLOL FUMARATE [Concomitant]
     Active Substance: BISOPROLOL FUMARATE
     Dosage: 5 MG, QD (STOPPED 2.5 MG)
     Route: 048
  8. CHOLEROSE [Concomitant]
     Indication: Lipids abnormal
     Dosage: 1 DOSAGE FORM, QD (AFTER LUNCH)
     Route: 048

REACTIONS (9)
  - Ejection fraction decreased [Unknown]
  - Blood triglycerides increased [Unknown]
  - Red blood cell sedimentation rate increased [Unknown]
  - Glycosylated haemoglobin increased [Unknown]
  - Myopia [Unknown]
  - Blood glucose increased [Unknown]
  - Fatigue [Recovering/Resolving]
  - Dizziness postural [Unknown]
  - Off label use [Recovered/Resolved]

NARRATIVE: CASE EVENT DATE: 20230920
